FAERS Safety Report 9199830 (Version 2)
Quarter: 2013Q2

REPORT INFORMATION
  Report Type: Report from Study
  Country: FR (occurrence: FR)
  Receive Date: 20130329
  Receipt Date: 20130408
  Transmission Date: 20140414
  Serious: Yes (Hospitalization)
  Sender: FDA-Public Use
  Company Number: FR-SANOFI-AVENTIS-2013SA031626

PATIENT
  Age: 56 Year
  Sex: Male
  Weight: 92 kg

DRUGS (17)
  1. LEFLUNOMIDE [Suspect]
     Indication: RHEUMATOID ARTHRITIS
     Route: 048
     Dates: start: 20040329
  2. TOCILIZUMAB [Suspect]
     Indication: RHEUMATOID ARTHRITIS
     Dosage: FREQUENCY EVERY 4 WEEKS
     Route: 042
     Dates: start: 20121108
  3. PREDNISONE [Concomitant]
     Indication: RHEUMATOID ARTHRITIS
     Route: 048
     Dates: start: 20121117
  4. PREDNISONE [Concomitant]
     Indication: RHEUMATOID ARTHRITIS
     Route: 048
     Dates: start: 20121118
  5. NAPROXEN [Concomitant]
     Indication: RHEUMATOID ARTHRITIS
     Route: 048
     Dates: start: 20130107
  6. CACIT D3 [Concomitant]
     Indication: PROPHYLAXIS
     Route: 048
  7. CYTOTEC [Concomitant]
     Indication: PROPHYLAXIS
     Route: 048
     Dates: end: 20130106
  8. BIPRETERAX [Concomitant]
     Indication: HYPERTENSION
     Route: 048
     Dates: end: 20130120
  9. BIPRETERAX [Concomitant]
     Indication: HYPERTENSION
     Route: 048
     Dates: start: 20130121
  10. ADALIMUMAB [Concomitant]
     Indication: RHEUMATOID ARTHRITIS
     Dosage: 1 IN 2 WEEKS
     Route: 058
     Dates: start: 20100216, end: 20121009
  11. DOLIPRANE [Concomitant]
     Indication: NASOPHARYNGITIS
     Route: 048
     Dates: start: 20130101, end: 20130106
  12. IBUPROFENE [Concomitant]
     Indication: NASOPHARYNGITIS
     Route: 048
     Dates: start: 20130103, end: 20130106
  13. INEXIUM [Concomitant]
     Indication: PROPHYLAXIS
     Route: 048
     Dates: start: 20130107
  14. CEFPODOXIME [Concomitant]
     Indication: EAR INFECTION
     Route: 048
     Dates: start: 20130111, end: 20130118
  15. ACETYLLEUCINE [Concomitant]
     Indication: VERTIGO POSITIONAL
     Route: 048
     Dates: start: 20130214, end: 20130221
  16. AMOXICILLINE [Concomitant]
     Indication: GROIN ABSCESS
     Route: 048
     Dates: start: 20130205, end: 20130213
  17. POTASSIUM CHLORATE [Concomitant]

REACTIONS (1)
  - Hepatitis [Not Recovered/Not Resolved]
